FAERS Safety Report 14471254 (Version 2)
Quarter: 2018Q1

REPORT INFORMATION
  Report Type: Spontaneous
  Country: CA (occurrence: CA)
  Receive Date: 20180131
  Receipt Date: 20180207
  Transmission Date: 20180509
  Serious: Yes (Other)
  Sender: FDA-Public Use
  Company Number: CA-PFIZER INC-2018036253

PATIENT
  Age: 61 Year
  Sex: Male

DRUGS (2)
  1. METHOTREXATE SODIUM. [Suspect]
     Active Substance: METHOTREXATE SODIUM
     Indication: RHEUMATOID ARTHRITIS
     Dosage: 25 MG, WEEKLY
     Route: 058
     Dates: start: 201506
  2. NAPROXEN. [Concomitant]
     Active Substance: NAPROXEN
     Dosage: UNK UNK, AS NEEDED

REACTIONS (3)
  - Palindromic rheumatism [Unknown]
  - Arthropathy [Unknown]
  - Mycobacterium tuberculosis complex test positive [Unknown]
